FAERS Safety Report 11677100 (Version 1)
Quarter: 2015Q4

REPORT INFORMATION
  Report Type: Spontaneous
  Country: FR (occurrence: FR)
  Receive Date: 20151028
  Receipt Date: 20151028
  Transmission Date: 20160304
  Serious: Yes (Death, Hospitalization)
  Sender: FDA-Public Use
  Company Number: FR-SA-2015SA165011

PATIENT
  Age: 63 Year
  Sex: Female

DRUGS (16)
  1. KADCYLA [Interacting]
     Active Substance: ADO-TRASTUZUMAB EMTANSINE
     Route: 065
     Dates: start: 20150731
  2. LAROXYL [Concomitant]
     Active Substance: AMITRIPTYLINE
  3. OXYCONTIN [Concomitant]
     Active Substance: OXYCODONE HYDROCHLORIDE
  4. KADCYLA [Interacting]
     Active Substance: ADO-TRASTUZUMAB EMTANSINE
     Route: 065
     Dates: start: 20150710
  5. CRESTOR [Interacting]
     Active Substance: ROSUVASTATIN CALCIUM
     Route: 065
     Dates: start: 20150917
  6. BISOPROLOL [Concomitant]
     Active Substance: BISOPROLOL
  7. VIALEBEX [Concomitant]
     Active Substance: ALBUMIN (HUMAN)
     Route: 065
     Dates: start: 20150918
  8. KADCYLA [Interacting]
     Active Substance: ADO-TRASTUZUMAB EMTANSINE
     Route: 065
     Dates: start: 20150619
  9. ESOMEPRAZOLE [Concomitant]
     Active Substance: ESOMEPRAZOLE
  10. LEVOTHYROX [Concomitant]
     Active Substance: LEVOTHYROXINE
  11. KADCYLA [Interacting]
     Active Substance: ADO-TRASTUZUMAB EMTANSINE
     Route: 042
     Dates: start: 20150821, end: 20150821
  12. SPIRONOLACTONE. [Interacting]
     Active Substance: SPIRONOLACTONE
     Route: 048
     Dates: end: 20150917
  13. DOLIPRANE [Concomitant]
     Active Substance: ACETAMINOPHEN
  14. LASILIX [Suspect]
     Active Substance: FUROSEMIDE
     Route: 048
     Dates: start: 20150910, end: 20150917
  15. EXFORGE [Interacting]
     Active Substance: AMLODIPINE BESYLATE\VALSARTAN
     Route: 048
     Dates: end: 20150917
  16. LAMALINE [Concomitant]
     Active Substance: ACETAMINOPHEN\CAFFEINE\OPIUM

REACTIONS (3)
  - Drug interaction [Unknown]
  - Acute kidney injury [Recovered/Resolved]
  - Hyperkalaemia [Recovered/Resolved]

NARRATIVE: CASE EVENT DATE: 20150917
